FAERS Safety Report 20838518 (Version 1)
Quarter: 2022Q2

REPORT INFORMATION
  Report Type: Spontaneous
  Country: CA (occurrence: CA)
  Receive Date: 20220517
  Receipt Date: 20220517
  Transmission Date: 20220721
  Serious: Yes (Hospitalization)
  Sender: FDA-Public Use
  Company Number: CA-PFIZER INC-202200701618

PATIENT
  Age: 79 Year
  Sex: Male

DRUGS (3)
  1. RITUXIMAB [Suspect]
     Active Substance: RITUXIMAB
     Indication: Rheumatoid arthritis
     Dosage: 1000 MG, 1 EVERY 6 MONTHS
     Route: 042
  2. RITUXIMAB [Suspect]
     Active Substance: RITUXIMAB
     Indication: Granulomatosis with polyangiitis
  3. ACETAMINOPHEN [Concomitant]
     Active Substance: ACETAMINOPHEN
     Indication: Pain

REACTIONS (3)
  - Fall [Not Recovered/Not Resolved]
  - Rib fracture [Not Recovered/Not Resolved]
  - Wrist fracture [Not Recovered/Not Resolved]
